FAERS Safety Report 5450560-7 (Version None)
Quarter: 2007Q3

REPORT INFORMATION
  Report Type: 
  Country: None (occurrence: None)
  Receive Date: 20070910
  Receipt Date: 20070828
  Transmission Date: 20080115
  Serious: Yes (Hospitalization)
  Sender: FDA-Public Use
  Company Number: 2007BI014777

PATIENT
  Age: 49 Year
  Sex: Female

DRUGS (17)
  1. NATALIZUMAB [Suspect]
     Indication: MULTIPLE SCLEROSIS
     Dosage: 300 MG; QM; IV
     Route: 042
     Dates: start: 20050101, end: 20050101
  2. NATALIZUMAB [Suspect]
     Indication: MULTIPLE SCLEROSIS
     Dosage: 300 MG; QM; IV
     Route: 042
     Dates: start: 20070129, end: 20070622
  3. VITAMIN B-12 [Concomitant]
  4. ULTRACETE [Concomitant]
  5. ALBUTEROL [Concomitant]
  6. FOLIC ACID [Concomitant]
  7. WARFARIN SODIUM [Concomitant]
  8. VALIUM [Concomitant]
  9. SENOKOT [Concomitant]
  10. LYRICA [Concomitant]
  11. DEXADRINE [Concomitant]
  12. AVINZA [Concomitant]
  13. PROVIGIL [Concomitant]
  14. DILAUDID [Concomitant]
  15. NASONEX [Concomitant]
  16. ACTONEL [Concomitant]
  17. CALCIUM [Concomitant]

REACTIONS (18)
  - ALANINE AMINOTRANSFERASE INCREASED [None]
  - BLOOD BICARBONATE INCREASED [None]
  - BLOOD GLUCOSE INCREASED [None]
  - COGNITIVE DISORDER [None]
  - CONFUSIONAL STATE [None]
  - FATIGUE [None]
  - HEADACHE [None]
  - HEARING IMPAIRED [None]
  - HYPERHIDROSIS [None]
  - INFUSION RELATED REACTION [None]
  - MALAISE [None]
  - MIGRAINE [None]
  - NAUSEA [None]
  - NERVOUS SYSTEM DISORDER [None]
  - SYSTEMIC LUPUS ERYTHEMATOSUS [None]
  - TREATMENT NONCOMPLIANCE [None]
  - TREMOR [None]
  - VISUAL ACUITY REDUCED [None]
